FAERS Safety Report 8958945 (Version 1)
Quarter: 2012Q4

REPORT INFORMATION
  Report Type: 
  Country: CH (occurrence: CH)
  Receive Date: 20121212
  Receipt Date: 20121212
  Transmission Date: 20130627
  Serious: Yes (Hospitalization)
  Sender: FDA-Public Use
  Company Number: CH-JNJFOC-20121106268

PATIENT
  Age: 75 Year
  Sex: Female
  Weight: 67 kg

DRUGS (10)
  1. XARELTO [Suspect]
     Indication: ATRIAL FIBRILLATION
     Route: 048
     Dates: start: 20121012, end: 20121105
  2. XARELTO [Suspect]
     Indication: CEREBROVASCULAR ACCIDENT PROPHYLAXIS
     Route: 048
     Dates: start: 20121012, end: 20121105
  3. HEPARIN [Concomitant]
     Route: 065
  4. NSAID^S [Concomitant]
     Route: 065
  5. PROTON PUMP INHIBITORS [Concomitant]
     Route: 065
  6. ENOXAPARIN [Concomitant]
     Route: 065
  7. ACETYL SALICYLIC ACID [Concomitant]
     Route: 065
  8. CLOPIDOGREL [Concomitant]
     Route: 065
  9. WARFARIN [Concomitant]
     Route: 065
  10. H2 BLOCKER [Concomitant]
     Route: 065

REACTIONS (2)
  - Gastric haemorrhage [Recovered/Resolved]
  - Melaena [Recovered/Resolved]
